FAERS Safety Report 12248609 (Version 2)
Quarter: 2016Q2

REPORT INFORMATION
  Report Type: Spontaneous
  Country: US (occurrence: US)
  Receive Date: 20160408
  Receipt Date: 20160606
  Transmission Date: 20160815
  Serious: No
  Sender: FDA-Public Use
  Company Number: US-PFIZER INC-2016177448

PATIENT
  Age: 73 Year
  Sex: Female

DRUGS (13)
  1. POTASSIUM CHLORIDE. [Concomitant]
     Active Substance: POTASSIUM CHLORIDE
  2. AMLODIPINE BESYLATE. [Concomitant]
     Active Substance: AMLODIPINE BESYLATE
  3. SIMVASTATIN. [Concomitant]
     Active Substance: SIMVASTATIN
  4. FLUZONE /01389801/ [Concomitant]
     Dosage: HIGH-DOSE
  5. EXEMESTANE. [Concomitant]
     Active Substance: EXEMESTANE
  6. FLUDROCORTISONE ACETATE. [Concomitant]
     Active Substance: FLUDROCORTISONE ACETATE
  7. PREVACID [Concomitant]
     Active Substance: LANSOPRAZOLE
  8. IBRANCE [Suspect]
     Active Substance: PALBOCICLIB
     Indication: BREAST CANCER
     Dosage: 125 MG, DAILY (X21)
     Dates: start: 20160106
  9. CALTRATE 600+D [Concomitant]
  10. GLUCOSAMINE CHONDROINATO [Concomitant]
  11. ASPIRIN /00002701/ [Concomitant]
     Active Substance: ASPIRIN
  12. METOPROLOL TARTRATE. [Concomitant]
     Active Substance: METOPROLOL TARTRATE
  13. RESTASIS [Concomitant]
     Active Substance: CYCLOSPORINE

REACTIONS (4)
  - Dysgeusia [Unknown]
  - Ageusia [Unknown]
  - Nasal congestion [Unknown]
  - Product use issue [Unknown]
